FAERS Safety Report 8143133-9 (Version None)
Quarter: 2012Q1

REPORT INFORMATION
  Report Type: 
  Country: None (occurrence: None)
  Receive Date: 20120217
  Receipt Date: 20120213
  Transmission Date: 20120608
  Serious: Yes (Other)
  Sender: FDA-Public Use
  Company Number: US-PFIZER INC-2012037706

PATIENT
  Sex: Female
  Weight: 45 kg

DRUGS (6)
  1. CHANTIX [Suspect]
     Dosage: UNK
     Route: 048
     Dates: start: 20120201
  2. TEMAZEPAM [Concomitant]
     Indication: SLEEP DISORDER
     Dosage: 20 MG, UNK
  3. CHANTIX [Suspect]
     Indication: SMOKING CESSATION THERAPY
     Dosage: 0.5 MG, DAILY
     Route: 048
     Dates: start: 20120205, end: 20120201
  4. ACTONEL [Concomitant]
     Indication: BONE DISORDER
  5. ACTONEL [Concomitant]
     Indication: MINERAL SUPPLEMENTATION
     Dosage: UNK, WEEKLY
     Route: 048
  6. ACTONEL [Concomitant]
     Indication: OSTEOPOROSIS

REACTIONS (8)
  - DISTURBANCE IN ATTENTION [None]
  - WEIGHT DECREASED [None]
  - ROAD TRAFFIC ACCIDENT [None]
  - THINKING ABNORMAL [None]
  - MALAISE [None]
  - FEELING ABNORMAL [None]
  - DYSGEUSIA [None]
  - GASTROINTESTINAL DISORDER [None]
